FAERS Safety Report 6059324-7 (Version None)
Quarter: 2009Q1

REPORT INFORMATION
  Report Type: 
  Country: None (occurrence: None)
  Receive Date: 20090128
  Receipt Date: 20090116
  Transmission Date: 20090719
  Serious: Yes (Congenital Anomaly, Other)
  Sender: FDA-Public Use
  Company Number: 1000003349

PATIENT
  Age: 1 Day
  Sex: Male

DRUGS (4)
  1. MILNACIPRAN HYDROCHLORIDE [Suspect]
     Indication: BACK PAIN
     Dosage: 50 MG (50 MG) ,TRANSPLACENTAL
     Route: 064
     Dates: end: 20070201
  2. LYRICA [Suspect]
     Indication: BACK PAIN
     Dosage: 150 MG (150 MG), TRANSPLACENTAL; 300 MG (300 MG) ,TRANSPLACENTAL
     Route: 064
     Dates: end: 20070201
  3. LYRICA [Suspect]
     Indication: BACK PAIN
     Dosage: 150 MG (150 MG), TRANSPLACENTAL; 300 MG (300 MG) ,TRANSPLACENTAL
     Route: 064
     Dates: end: 20070201
  4. ATARAX [Suspect]
     Indication: BACK PAIN
     Dosage: 25 MG (25 MG) ,TRANSPLACENTAL
     Route: 064
     Dates: end: 20070201

REACTIONS (5)
  - CONGENITAL ANOMALY [None]
  - CONGENITAL HAND MALFORMATION [None]
  - DRUG EXPOSURE BEFORE PREGNANCY [None]
  - FINGER DEFORMITY [None]
  - LIMB DEFORMITY [None]
